FAERS Safety Report 14823970 (Version 4)
Quarter: 2018Q2

REPORT INFORMATION
  Report Type: Report from Study
  Country: US (occurrence: US)
  Receive Date: 20180428
  Receipt Date: 20180511
  Transmission Date: 20180711
  Serious: No
  Sender: FDA-Public Use
  Company Number: PHEH2018US016539

PATIENT
  Sex: Male

DRUGS (2)
  1. COSENTYX [Suspect]
     Active Substance: SECUKINUMAB
     Dosage: UNK, QW
     Route: 058
     Dates: start: 20180413
  2. COSENTYX [Suspect]
     Active Substance: SECUKINUMAB
     Indication: PRODUCT USED FOR UNKNOWN INDICATION
     Dosage: UNK, QW
     Route: 058
     Dates: start: 20180328

REACTIONS (4)
  - Oropharyngeal pain [Recovering/Resolving]
  - Ear discomfort [Unknown]
  - Sinusitis [Unknown]
  - Nasopharyngitis [Unknown]
